FAERS Safety Report 5336675-2 (Version None)
Quarter: 2007Q2

REPORT INFORMATION
  Report Type: 
  Country: None (occurrence: None)
  Receive Date: 20070524
  Receipt Date: 20070524
  Transmission Date: 20071010
  Serious: Yes (Life-Threatening)
  Sender: FDA-Public Use
  Company Number: None

PATIENT
  Age: 72 Year
  Sex: Female
  Weight: 50.5 kg

DRUGS (2)
  1. MORPHINE SULFATE 60 [Suspect]
     Indication: PAIN
     Dosage: 60MG BID PO
     Route: 048
     Dates: start: 20070427, end: 20070428
  2. MORPHINE SULFATE SOLUABLE 10MG [Suspect]
     Indication: PAIN
     Dosage: 10MG Q8H PRN PO
     Route: 048
     Dates: start: 20070427, end: 20070428

REACTIONS (10)
  - BLOOD PH DECREASED [None]
  - LOSS OF CONSCIOUSNESS [None]
  - MENTAL STATUS CHANGES [None]
  - MIOSIS [None]
  - PCO2 INCREASED [None]
  - PO2 DECREASED [None]
  - RESPIRATORY DEPRESSION [None]
  - RESPIRATORY RATE DECREASED [None]
  - SEDATION [None]
  - UNRESPONSIVE TO STIMULI [None]
